FAERS Safety Report 9905050 (Version 1)
Quarter: 2014Q1

REPORT INFORMATION
  Report Type: Spontaneous
  Country: JP (occurrence: None)
  Receive Date: 20140211
  Receipt Date: 20140211
  Transmission Date: 20141002
  Serious: Yes (Hospitalization, Other)
  Sender: FDA-Public Use
  Company Number: JP-014176

PATIENT
  Age: 71 Year
  Sex: Male

DRUGS (7)
  1. DEGARELIX (GONAX) 80MG [Suspect]
     Indication: PROSTATE CANCER
     Dosage: 4 WEEKS
     Route: 058
     Dates: start: 20131009
  2. ESTRACYT [Suspect]
     Indication: PRODUCT USED FOR UNKNOWN INDICATION
     Route: 048
     Dates: start: 20130105
  3. PREDONINE [Suspect]
     Indication: PRODUCT USED FOR UNKNOWN INDICATION
     Route: 048
  4. OXYCONTIN [Suspect]
     Indication: PRODUCT USED FOR UNKNOWN INDICATION
     Route: 048
     Dates: start: 20131204
  5. ZOMETA [Suspect]
     Indication: PRODUCT USED FOR UNKNOWN INDICATION
     Route: 058
     Dates: start: 20020905, end: 20131204
  6. PREDNISOLONE [Concomitant]
  7. OXYCONTIN [Concomitant]

REACTIONS (5)
  - Hepatic function abnormal [None]
  - Alanine aminotransferase increased [None]
  - Aspartate aminotransferase increased [None]
  - Dyspnoea [None]
  - Blood bilirubin increased [None]
